FAERS Safety Report 8717108 (Version 2)
Quarter: 2012Q4

REPORT INFORMATION
  Report Type: 
  Country: US (occurrence: US)
  Receive Date: 20120810
  Receipt Date: 20121214
  Transmission Date: 20130627
  Serious: Yes (Hospitalization, Other)
  Sender: FDA-Public Use
  Company Number: US-US-EMD SERONO, INC.-7152408

PATIENT
  Sex: Male

DRUGS (1)
  1. REBIF [Suspect]
     Indication: MULTIPLE SCLEROSIS
     Route: 058
     Dates: start: 20090720

REACTIONS (8)
  - Exostosis [Unknown]
  - Post procedural infection [Unknown]
  - Rotator cuff syndrome [Unknown]
  - Eye disorder [Unknown]
  - Paraesthesia [Recovering/Resolving]
  - Injection site bruising [Unknown]
  - Injection site haemorrhage [Unknown]
  - Fatigue [Not Recovered/Not Resolved]
